FAERS Safety Report 26053055 (Version 2)
Quarter: 2025Q4

REPORT INFORMATION
  Report Type: Spontaneous
  Country: EU (occurrence: EU)
  Receive Date: 20251117
  Receipt Date: 20251214
  Transmission Date: 20260118
  Serious: Yes (Other)
  Sender: TEVA
  Company Number: None

PATIENT
  Age: 76 Year
  Sex: Male
  Weight: 60 kg

DRUGS (14)
  1. PACLITAXEL [Suspect]
     Active Substance: PACLITAXEL
     Indication: Product used for unknown indication
     Dosage: PACLITAXEL 300 MG EVERY 21 DAYS FOR 4 CYCLES
     Route: 042
     Dates: start: 20250616, end: 20250819
  2. PACLITAXEL [Suspect]
     Active Substance: PACLITAXEL
     Indication: Product used for unknown indication
     Dosage: PACLITAXEL 300 MG EVERY 21 DAYS FOR 4 CYCLES
     Route: 042
     Dates: start: 20250616, end: 20250819
  3. PACLITAXEL [Suspect]
     Active Substance: PACLITAXEL
     Indication: Product used for unknown indication
     Dosage: PACLITAXEL 300 MG EVERY 21 DAYS FOR 4 CYCLES
     Route: 042
     Dates: start: 20250616, end: 20250819
  4. PREDNISONE [Concomitant]
     Active Substance: PREDNISONE
     Indication: Product used for unknown indication
     Dosage: HE TAKES HALF A TABLET OF DELTACORTENE 25 MG EVERY DAY AT 8 AM. HE GRADUALLY REDUCES THE DOSAGE F...
     Route: 048
     Dates: start: 20250313, end: 20250728
  5. ACETAMINOPHEN\OXYCODONE HYDROCHLORIDE [Concomitant]
     Active Substance: ACETAMINOPHEN\OXYCODONE HYDROCHLORIDE
     Indication: Product used for unknown indication
     Dosage: DEPALGOS 5+ 325 MILLIGRAMS 1 TABLET PER DAY IN CASE OF PAIN
  6. PANTOPRAZOLE SODIUM [Concomitant]
     Active Substance: PANTOPRAZOLE SODIUM
     Indication: Product used for unknown indication
     Route: 048
  7. MOVICOL [Concomitant]
     Active Substance: POLYETHYLENE GLYCOL 3350\POTASSIUM CHLORIDE\SODIUM BICARBONATE\SODIUM CHLORIDE
     Indication: Product used for unknown indication
     Dosage: MOVICOL 1 SACHET IN THE MORNING AND 1 SACHET IN THE EVENING
  8. NALOXONE HYDROCHLORIDE\OXYCODONE HYDROCHLORIDE [Concomitant]
     Active Substance: NALOXONE HYDROCHLORIDE\OXYCODONE HYDROCHLORIDE
     Indication: Product used for unknown indication
     Dosage: TARGIN 10+5 MG 1 TABLET AT 8:00 AM, 1 TABLET AT 8:00 PM
  9. KEYTRUDA [Suspect]
     Active Substance: PEMBROLIZUMAB
     Indication: Lung squamous cell carcinoma metastatic
     Dosage: KEYTRUDA (PEMBROLIZUMAB) 200 MG INTRAVENOUSLY EVERY 21 DAYS FOR 4 CYCLES
     Route: 042
     Dates: start: 20250616, end: 20250819
  10. KEYTRUDA [Suspect]
     Active Substance: PEMBROLIZUMAB
     Indication: Lung squamous cell carcinoma metastatic
     Dosage: KEYTRUDA (PEMBROLIZUMAB) 200 MG INTRAVENOUSLY EVERY 21 DAYS FOR 4 CYCLES
     Route: 042
     Dates: start: 20250616, end: 20250819
  11. KEYTRUDA [Suspect]
     Active Substance: PEMBROLIZUMAB
     Indication: Lung squamous cell carcinoma metastatic
     Dosage: KEYTRUDA (PEMBROLIZUMAB) 200 MG INTRAVENOUSLY EVERY 21 DAYS FOR 4 CYCLES
     Route: 042
     Dates: start: 20250616, end: 20250819
  12. KEYTRUDA [Suspect]
     Active Substance: PEMBROLIZUMAB
     Indication: Lung squamous cell carcinoma metastatic
     Dosage: KEYTRUDA (PEMBROLIZUMAB) 200 MG INTRAVENOUSLY EVERY 21 DAYS FOR 4 CYCLES
     Route: 042
     Dates: start: 20250616, end: 20250819
  13. CARBOPLATIN [Suspect]
     Active Substance: CARBOPLATIN
     Indication: Lung carcinoma cell type unspecified stage IV
     Dosage: CARBOPLATIN 500 MG IV EVERY 21 DAYS FOR 4 CYCLES
     Route: 042
     Dates: start: 20250616, end: 20250819
  14. CARBOPLATIN [Suspect]
     Active Substance: CARBOPLATIN
     Indication: Lung carcinoma cell type unspecified stage IV
     Dosage: CARBOPLATIN 500 MG IV EVERY 21 DAYS FOR 4 CYCLES
     Route: 042
     Dates: start: 20250616, end: 20250819

REACTIONS (1)
  - Interstitial lung disease [Recovering/Resolving]

NARRATIVE: CASE EVENT DATE: 20250909
